FAERS Safety Report 12093519 (Version 1)
Quarter: 2016Q1

REPORT INFORMATION
  Report Type: Spontaneous
  Country: JP (occurrence: None)
  Receive Date: 20160217
  Receipt Date: 20160217
  Transmission Date: 20160526
  Serious: Yes (Other)
  Sender: FDA-Public Use
  Company Number: 2016-00711

PATIENT
  Age: 51 Year
  Sex: Female
  Weight: 142 kg

DRUGS (5)
  1. EPIRUBICIN (UNKNOWN) (EPIRUBICIN HYDROCHLORIDE) UNK, UNKUNK [Suspect]
     Active Substance: EPIRUBICIN
     Indication: BREAST CANCER STAGE IV
     Dosage: CYCLICAL, 10 CYCLES, INTRAVENOUS
     Route: 042
     Dates: start: 19981110
  2. MEDROXYPROGESTERONE (MEDROXYPROGESTERONE) [Suspect]
     Active Substance: MEDROXYPROGESTERONE
     Indication: BREAST CANCER STAGE IV
     Route: 048
  3. DOXIFLURIDINE (DOXIFLURIDINE) [Suspect]
     Active Substance: DOXIFLURIDINE
     Indication: BREAST CANCER STAGE IV
     Route: 048
  4. 5-FLUOURACIL /00098801/ (FLUOROURACIL) [Suspect]
     Active Substance: FLUOROURACIL
     Indication: BREAST CANCER STAGE IV
     Dosage: 500 MG/DAY, CYCLICAL
  5. CYCLOPHOSPHAMIDE (CYCLOPHOSPHAMIDE) [Suspect]
     Active Substance: CYCLOPHOSPHAMIDE
     Indication: BREAST CANCER STAGE IV
     Dosage: 100 MG/DAY, CYCLICAL, 2 WEEKS THERAPY 2 WEEKS REST

REACTIONS (4)
  - Weight increased [None]
  - Alopecia [None]
  - Bone marrow failure [None]
  - Leukopenia [None]
